FAERS Safety Report 9092852 (Version 1)
Quarter: 2013Q1

REPORT INFORMATION
  Report Type: Spontaneous
  Country: US (occurrence: None)
  Receive Date: 20130213
  Receipt Date: 20130213
  Transmission Date: 20140127
  Serious: Yes (Life-Threatening)
  Sender: FDA-Public Use
  Company Number: None

PATIENT
  Sex: Female
  Weight: 61.24 kg

DRUGS (1)
  1. RESTASIS [Suspect]
     Indication: DRY EYE
     Route: 031
     Dates: start: 20070301, end: 20130120

REACTIONS (1)
  - Rhinorrhoea [None]
